FAERS Safety Report 15473167 (Version 1)
Quarter: 2018Q4

REPORT INFORMATION
  Report Type: Spontaneous
  Country: AU (occurrence: AU)
  Receive Date: 20181008
  Receipt Date: 20181008
  Transmission Date: 20190205
  Serious: Yes (Hospitalization, Other)
  Sender: FDA-Public Use
  Company Number: AU-CORDEN PHARMA LATINA S.P.A.-AU-2018COR000114

PATIENT

DRUGS (6)
  1. CARBOPLATIN. [Suspect]
     Active Substance: CARBOPLATIN
     Dosage: 20% DOSE REDUCTION FOR CYCLES 2 AND 3; CYCLE 3 WAS GIVEN ON DAY 20.
     Route: 065
  2. CARBOPLATIN. [Suspect]
     Active Substance: CARBOPLATIN
     Indication: LUNG SQUAMOUS CELL CARCINOMA STAGE II
     Dosage: AUC 5 DAY 1
     Route: 065
  3. CISPLATIN. [Suspect]
     Active Substance: CISPLATIN
     Indication: LUNG SQUAMOUS CELL CARCINOMA STAGE II
     Dosage: 50 MG/M2, DAYS 1, 8, 29, AND 36
     Route: 065
  4. ETOPOSIDE. [Suspect]
     Active Substance: ETOPOSIDE
     Indication: LUNG SQUAMOUS CELL CARCINOMA STAGE II
     Dosage: 50 MG/M2, DAYS 1 TO 5 AND 29 TO 33
     Route: 065
  5. DOCETAXEL. [Suspect]
     Active Substance: DOCETAXEL
     Indication: LUNG SQUAMOUS CELL CARCINOMA STAGE II
     Dosage: 75 MG/M2 DAY 1 OF 21?DAY CYCLE AT 50% DOSE REDUCTION
     Route: 065
  6. GEMCITABINE [Suspect]
     Active Substance: GEMCITABINE\GEMCITABINE HYDROCHLORIDE
     Indication: LUNG SQUAMOUS CELL CARCINOMA STAGE II
     Dosage: 1000 MG/M2, DAYS 1 AND 8 OF A 21?DAY CYCLE
     Route: 065

REACTIONS (2)
  - Febrile neutropenia [Unknown]
  - Colitis [Recovered/Resolved]
